FAERS Safety Report 6856516-1 (Version None)
Quarter: 2010Q3

REPORT INFORMATION
  Report Type: 
  Country: None (occurrence: None)
  Receive Date: 20100719
  Receipt Date: 20100706
  Transmission Date: 20110219
  Serious: Yes (Hospitalization)
  Sender: FDA-Public Use
  Company Number: PHHY2010CL05099

PATIENT
  Age: 66 Year
  Sex: Female

DRUGS (4)
  1. ACLASTA [Suspect]
     Indication: OSTEOPOROSIS
     Dosage: 5 MG
     Dates: start: 20091126
  2. LEVOTHYROXINE SODIUM [Concomitant]
  3. RAVOTRIL [Concomitant]
  4. DORMONID [Concomitant]

REACTIONS (7)
  - BONE PAIN [None]
  - CONTUSION [None]
  - FALL [None]
  - PAIN [None]
  - PLATELET COUNT DECREASED [None]
  - PYREXIA [None]
  - WHITE BLOOD CELL COUNT DECREASED [None]
